FAERS Safety Report 19835291 (Version 2)
Quarter: 2021Q4

REPORT INFORMATION
  Report Type: Spontaneous
  Country: CN (occurrence: CN)
  Receive Date: 20210915
  Receipt Date: 20211005
  Transmission Date: 20220303
  Serious: Yes (Hospitalization, Other)
  Sender: FDA-Public Use
  Company Number: CN-ACCORD-238223

PATIENT
  Age: 63 Year
  Sex: Female
  Weight: 61 kg

DRUGS (3)
  1. SIMVASTATIN [Interacting]
     Active Substance: SIMVASTATIN
     Indication: Hyperlipidaemia
     Dosage: AT NIGHT
     Route: 048
  2. IRESSA [Interacting]
     Active Substance: GEFITINIB
     Indication: Lung adenocarcinoma
     Dosage: 0.25 G GEFITINIB EACH DAY, CYCLED?EVERY 3 WEEKS
     Route: 048
     Dates: start: 201902, end: 20200420
  3. NIFEDIPINE [Interacting]
     Active Substance: NIFEDIPINE
     Indication: Hypertension
     Dosage: SUSTAINED-RELEASE TABLETS EVERY DAY
     Route: 048

REACTIONS (4)
  - Paronychia [Recovering/Resolving]
  - Skin reaction [Recovering/Resolving]
  - Condition aggravated [Recovering/Resolving]
  - Drug interaction [Unknown]

NARRATIVE: CASE EVENT DATE: 20191130
